FAERS Safety Report 6483409-4 (Version None)
Quarter: 2009Q4

REPORT INFORMATION
  Report Type: 
  Country: None (occurrence: None)
  Receive Date: 20091209
  Receipt Date: 20091202
  Transmission Date: 20100525
  Serious: Yes (Other)
  Sender: FDA-Public Use
  Company Number: GB-PFIZER INC-2009280159

PATIENT
  Age: 54 Year
  Sex: Female
  Weight: 74.83 kg

DRUGS (2)
  1. LIPITOR [Suspect]
     Dosage: 10 MG, 1X/DAY
     Route: 048
     Dates: start: 20010210, end: 20091118
  2. VALSARTAN [Concomitant]
     Indication: HYPERTENSION
     Dosage: 40 MG, UNK
     Route: 048
     Dates: start: 20000101

REACTIONS (7)
  - ALOPECIA [None]
  - AMNESIA [None]
  - BALANCE DISORDER [None]
  - COGNITIVE DISORDER [None]
  - DISORIENTATION [None]
  - MUSCULAR WEAKNESS [None]
  - SPEECH DISORDER [None]
